FAERS Safety Report 6663503-5 (Version None)
Quarter: 2010Q2

REPORT INFORMATION
  Report Type: 
  Country: None (occurrence: None)
  Receive Date: 20100401
  Receipt Date: 20100324
  Transmission Date: 20101027
  Serious: Yes (Other)
  Sender: FDA-Public Use
  Company Number: JP-PFIZER INC-2010023145

PATIENT
  Age: 83 Year
  Sex: Male
  Weight: 52 kg

DRUGS (7)
  1. ZYVOX [Suspect]
     Indication: STAPHYLOCOCCAL INFECTION
     Dosage: 600 MG, 2X/DAY
     Route: 042
     Dates: start: 20091223, end: 20091229
  2. ZYVOX [Suspect]
     Dosage: 600 MG, 2X/DAY
     Route: 042
     Dates: start: 20100127, end: 20100210
  3. HEPARIN SODIUM [Suspect]
     Dosage: 10000 UNITS
     Route: 042
     Dates: start: 20100203, end: 20100215
  4. VANCOMYCIN HYDROCHLORIDE [Concomitant]
     Indication: HIP ARTHROPLASTY
     Dosage: UNK
     Route: 042
     Dates: start: 20100115
  5. VANCOMYCIN HYDROCHLORIDE [Concomitant]
     Dosage: UNK
     Dates: start: 20100218
  6. ASPIRIN [Concomitant]
     Route: 048
     Dates: end: 20100203
  7. PLAVIX [Concomitant]
     Route: 048
     Dates: end: 20100203

REACTIONS (2)
  - PETECHIAE [None]
  - PLATELET COUNT DECREASED [None]
